FAERS Safety Report 11038712 (Version 3)
Quarter: 2015Q3

REPORT INFORMATION
  Report Type: Spontaneous
  Country: US (occurrence: US)
  Receive Date: 20150416
  Receipt Date: 20150821
  Transmission Date: 20151125
  Serious: Yes (Death, Other)
  Sender: FDA-Public Use
  Company Number: US-009507513-1504USA015490

PATIENT
  Sex: Male
  Weight: 90.7 kg

DRUGS (2)
  1. JANUVIA [Suspect]
     Active Substance: SITAGLIPTIN PHOSPHATE
     Indication: TYPE 2 DIABETES MELLITUS
     Dosage: 100 MG, QD
     Route: 048
     Dates: start: 20070920, end: 20071219
  2. JANUVIA [Suspect]
     Active Substance: SITAGLIPTIN PHOSPHATE
     Dosage: 100 MG, QD
     Route: 048
     Dates: start: 20080703, end: 20080911

REACTIONS (46)
  - Metastases to lung [Unknown]
  - Metastases to bone [Unknown]
  - Cholelithiasis [Unknown]
  - Carotid artery disease [Unknown]
  - Lymphadenopathy [Unknown]
  - Insomnia [Unknown]
  - Cardiomegaly [Unknown]
  - Hypertension [Unknown]
  - Aortic aneurysm [Unknown]
  - Aortic aneurysm [Unknown]
  - Decreased appetite [Unknown]
  - Malnutrition [Unknown]
  - Glaucoma [Unknown]
  - Aortic stenosis [Unknown]
  - Spondylitis [Unknown]
  - Osteopenia [Unknown]
  - Calcinosis [Unknown]
  - Ligament calcification [Unknown]
  - Blood urine present [Unknown]
  - Supraventricular extrasystoles [Unknown]
  - Electrocardiogram ST-T segment abnormal [Unknown]
  - Peripheral artery aneurysm [Unknown]
  - Varicose vein [Unknown]
  - Gastrooesophageal reflux disease [Unknown]
  - Benign prostatic hyperplasia [Unknown]
  - Arterial disorder [Unknown]
  - Platelet count decreased [Unknown]
  - Arteriosclerosis [Unknown]
  - Blindness [Unknown]
  - Metastases to liver [Unknown]
  - Pancreatic calcification [Unknown]
  - Vascular calcification [Unknown]
  - Depressed mood [Unknown]
  - Renal atrophy [Unknown]
  - Aortic arteriosclerosis [Unknown]
  - Interstitial lung disease [Unknown]
  - White blood cells urine positive [Unknown]
  - Atrial fibrillation [Unknown]
  - Oedema peripheral [Unknown]
  - Pancreatic carcinoma metastatic [Fatal]
  - Renal cyst [Unknown]
  - Renal atrophy [Unknown]
  - Rhinitis [Unknown]
  - Nocturia [Unknown]
  - Arthritis [Unknown]
  - Blood creatinine increased [Unknown]

NARRATIVE: CASE EVENT DATE: 20071218
